FAERS Safety Report 6392153-3 (Version None)
Quarter: 2009Q4

REPORT INFORMATION
  Report Type: 
  Country: None (occurrence: None)
  Receive Date: 20091007
  Receipt Date: 20090925
  Transmission Date: 20100525
  Serious: Yes (Other)
  Sender: FDA-Public Use
  Company Number: US-JNJFOC-20091001081

PATIENT
  Age: 26 Month
  Sex: Female
  Weight: 10.89 kg

DRUGS (3)
  1. TYLENOL (CAPLET) [Suspect]
  2. TYLENOL (CAPLET) [Suspect]
     Indication: PYREXIA
     Dosage: GIVEN ^HALF OF .125ML, PER DOCTOR^
  3. CONCENTRATED MOTRIN INFANTS' [Concomitant]
     Indication: PYREXIA
     Dosage: GIVEN ^HALF OF .125ML, PER DOCTOR^

REACTIONS (2)
  - PYREXIA [None]
  - TRANSMISSION OF AN INFECTIOUS AGENT VIA A MEDICINAL PRODUCT [None]
